FAERS Safety Report 13064960 (Version 1)
Quarter: 2016Q4

REPORT INFORMATION
  Report Type: Spontaneous
  Country: BE (occurrence: BE)
  Receive Date: 20161227
  Receipt Date: 20161227
  Transmission Date: 20170207
  Serious: Yes (Other)
  Sender: FDA-Public Use
  Company Number: BE-JNJFOC-20160327270

PATIENT
  Age: 46 Year
  Sex: Female

DRUGS (4)
  1. SIMPONI [Suspect]
     Active Substance: GOLIMUMAB
     Indication: COLITIS
     Route: 058
     Dates: start: 20160425
  2. IMURAN [Concomitant]
     Active Substance: AZATHIOPRINE
     Indication: COLITIS
     Route: 065
     Dates: end: 20160615
  3. SIMPONI [Suspect]
     Active Substance: GOLIMUMAB
     Indication: COLITIS
     Route: 058
     Dates: start: 20160314, end: 20160314
  4. SIMPONI [Suspect]
     Active Substance: GOLIMUMAB
     Indication: COLITIS
     Route: 058
     Dates: start: 20160328, end: 20160328

REACTIONS (10)
  - Fatigue [Not Recovered/Not Resolved]
  - Haemorrhage [Recovering/Resolving]
  - Thyroiditis acute [Unknown]
  - Injection site pain [Recovering/Resolving]
  - Muscle spasms [Unknown]
  - Product use issue [Unknown]
  - Influenza like illness [Unknown]
  - Inflammation [Unknown]
  - Pyrexia [Recovering/Resolving]
  - Off label use [Unknown]

NARRATIVE: CASE EVENT DATE: 201603
